FAERS Safety Report 21885018 (Version 1)
Quarter: 2023Q1

REPORT INFORMATION
  Report Type: Spontaneous
  Country: GB (occurrence: GB)
  Receive Date: 20230119
  Receipt Date: 20230119
  Transmission Date: 20230418
  Serious: Yes (Other)
  Sender: FDA-Public Use
  Company Number: GB-MHRA-MED-202301101043255150-BCDHJ

PATIENT
  Age: 71 Year
  Sex: Female
  Weight: 70 kg

DRUGS (2)
  1. DOXYCYCLINE [Suspect]
     Active Substance: DOXYCYCLINE
     Indication: Lower respiratory tract infection
     Dosage: 200GM INITIAL THEN 100GMS DAILY
     Dates: start: 20221208, end: 20221208
  2. HORMONE BALANCE NATURAL HRT [Concomitant]
     Indication: Menopausal symptoms
     Route: 061
     Dates: start: 20020103

REACTIONS (4)
  - Vomiting projectile [Recovering/Resolving]
  - Nausea [Recovering/Resolving]
  - Dyspepsia [Not Recovered/Not Resolved]
  - Decreased appetite [Not Recovered/Not Resolved]

NARRATIVE: CASE EVENT DATE: 20221208
